FAERS Safety Report 16798084 (Version 3)
Quarter: 2019Q3

REPORT INFORMATION
  Report Type: Spontaneous
  Country: US (occurrence: US)
  Receive Date: 20190912
  Receipt Date: 20190918
  Transmission Date: 20191005
  Serious: No
  Sender: FDA-Public Use
  Company Number: US-TEVA-2019-US-1107045

PATIENT
  Sex: Male

DRUGS (3)
  1. SUMATRIPTAN INJECTION [Concomitant]
     Active Substance: SUMATRIPTAN
  2. AJOVY [Suspect]
     Active Substance: FREMANEZUMAB-VFRM
     Indication: CLUSTER HEADACHE
     Dosage: MOST RECENT INJECTION (9/3/19)
     Route: 065
     Dates: start: 201908
  3. SUMATRIPTAN TABLETS [Concomitant]
     Active Substance: SUMATRIPTAN

REACTIONS (3)
  - Drug ineffective [Unknown]
  - Loss of personal independence in daily activities [Unknown]
  - Product use in unapproved indication [Unknown]

NARRATIVE: CASE EVENT DATE: 20190809
